FAERS Safety Report 20078213 (Version 3)
Quarter: 2023Q1

REPORT INFORMATION
  Report Type: Spontaneous
  Country: ES (occurrence: ES)
  Receive Date: 20211117
  Receipt Date: 20230116
  Transmission Date: 20230417
  Serious: Yes (Life-Threatening, Hospitalization, Other)
  Sender: FDA-Public Use
  Company Number: ES-AEMPS-1044407

PATIENT
  Age: 62 Year
  Sex: Male

DRUGS (6)
  1. VALGANCICLOVIR [Interacting]
     Active Substance: VALGANCICLOVIR
     Indication: Brain abscess
     Dosage: 900 MILLIGRAM, BID (12 HOURS)
     Route: 048
     Dates: start: 20210825, end: 20210830
  2. TACROLIMUS [Interacting]
     Active Substance: TACROLIMUS
     Indication: Lung transplant
     Dosage: UNK
     Route: 048
     Dates: start: 20210821
  3. AMBISOME [Interacting]
     Active Substance: AMPHOTERICIN B
     Indication: Brain abscess
     Dosage: 350 MILLIGRAM, QD (POWDER FOR INFUSION DISPERSION)
     Route: 042
     Dates: start: 20210822, end: 20210826
  4. ISAVUCONAZOLE [Interacting]
     Active Substance: ISAVUCONAZOLE
     Indication: Brain abscess
     Dosage: 200 MILLIGRAM, TID (8 HOURS)
     Route: 048
     Dates: start: 20210826, end: 20210828
  5. CILASTATIN SODIUM\IMIPENEM [Interacting]
     Active Substance: CILASTATIN SODIUM\IMIPENEM
     Indication: Brain abscess
     Dosage: 500 MILLIGRAM, QID, 6 HOURS (POWDER FOR INFUSION EFG SOLUTION)
     Route: 042
     Dates: start: 20210820, end: 20210830
  6. AMIKACIN SULFATE [Interacting]
     Active Substance: AMIKACIN SULFATE
     Indication: Brain abscess
     Dosage: 525 MILLIGRAM, BID (12 HOURS)
     Route: 042
     Dates: start: 20210820, end: 20210830

REACTIONS (2)
  - Depressed level of consciousness [Recovered/Resolved]
  - Generalised tonic-clonic seizure [Recovered/Resolved]

NARRATIVE: CASE EVENT DATE: 20210827
